FAERS Safety Report 14677593 (Version 1)
Quarter: 2018Q1

REPORT INFORMATION
  Report Type: Spontaneous
  Country: US (occurrence: US)
  Receive Date: 20180323
  Receipt Date: 20180323
  Transmission Date: 20180509
  Serious: Yes (Other)
  Sender: FDA-Public Use
  Company Number: None

PATIENT
  Age: 25 Year
  Sex: Male
  Weight: 67.5 kg

DRUGS (2)
  1. ALBUTEROL INHALER [Concomitant]
     Active Substance: ALBUTEROL
  2. BUPROPION XL [Suspect]
     Active Substance: BUPROPION
     Indication: DEPRESSION
     Dosage: ?          QUANTITY:1 TABLET(S);?
     Route: 048
     Dates: start: 20180314, end: 20180322

REACTIONS (1)
  - Rectal haemorrhage [None]

NARRATIVE: CASE EVENT DATE: 20180314
